FAERS Safety Report 7291228-4 (Version None)
Quarter: 2011Q1

REPORT INFORMATION
  Report Type: 
  Country: None (occurrence: None)
  Receive Date: 20110214
  Receipt Date: 20110203
  Transmission Date: 20110831
  Serious: Yes (Other)
  Sender: FDA-Public Use
  Company Number: US-JNJFOC-20101207455

PATIENT
  Sex: Male
  Weight: 94.35 kg

DRUGS (7)
  1. REMICADE [Suspect]
     Route: 042
  2. FOLIC ACID [Concomitant]
  3. REMICADE [Suspect]
     Indication: CROHN'S DISEASE
     Route: 042
  4. VITAMIN B-12 [Concomitant]
  5. PROZAC [Concomitant]
  6. PROTONIX [Concomitant]
  7. COLESTID [Concomitant]

REACTIONS (2)
  - NASOPHARYNGEAL CANCER [None]
  - PAPILLOMA VIRAL INFECTION [None]
